FAERS Safety Report 9424113 (Version 2)
Quarter: 2013Q4

REPORT INFORMATION
  Report Type: Report from Study
  Country: CN (occurrence: CN)
  Receive Date: 20130729
  Receipt Date: 20131211
  Transmission Date: 20140711
  Serious: Yes (Hospitalization, Other)
  Sender: FDA-Public Use
  Company Number: CN-ROCHE-1250968

PATIENT
  Age: 34 Year
  Sex: Male

DRUGS (4)
  1. CELLCEPT [Suspect]
     Indication: LIVER TRANSPLANT
     Route: 048
     Dates: start: 20110818
  2. RAPAMUNE [Concomitant]
     Indication: LIVER TRANSPLANT
     Dosage: 2 DF A DAY
     Route: 048
     Dates: start: 20110818
  3. PROGRAF [Concomitant]
     Indication: LIVER TRANSPLANT
     Route: 048
     Dates: start: 20110818, end: 201301
  4. SIROLIMUS [Concomitant]
     Indication: LIVER TRANSPLANT
     Route: 048
     Dates: start: 201301

REACTIONS (13)
  - Protein urine present [Unknown]
  - Biliary tract disorder [Recovering/Resolving]
  - Anastomotic stenosis [Not Recovered/Not Resolved]
  - Hypertension [Unknown]
  - Gamma-glutamyltransferase increased [Recovering/Resolving]
  - Alanine aminotransferase increased [Not Recovered/Not Resolved]
  - Aspartate aminotransferase increased [Not Recovered/Not Resolved]
  - Pyrexia [Not Recovered/Not Resolved]
  - Jaundice [Recovering/Resolving]
  - Blood uric acid increased [Unknown]
  - Transaminases increased [Recovering/Resolving]
  - Blood urea increased [Unknown]
  - Blood creatinine increased [Unknown]
